FAERS Safety Report 8806948 (Version 2)
Quarter: 2015Q2

REPORT INFORMATION
  Report Type: Report from Study
  Country: US (occurrence: US)
  Receive Date: 20120925
  Receipt Date: 20150410
  Transmission Date: 20150821
  Serious: Yes (Death)
  Sender: FDA-Public Use
  Company Number: US-ROCHE-1102845

PATIENT
  Sex: Female

DRUGS (12)
  1. PHENERGAN [Concomitant]
     Active Substance: PROMETHAZINE HYDROCHLORIDE
  2. HEPARIN [Concomitant]
     Active Substance: HEPARIN SODIUM
     Dosage: 500 UNIT
     Route: 042
  3. TAXOTERE [Suspect]
     Active Substance: DOCETAXEL
     Indication: PRODUCT USED FOR UNKNOWN INDICATION
     Route: 065
  4. AVASTIN [Suspect]
     Active Substance: BEVACIZUMAB
     Indication: BREAST CANCER FEMALE
     Dosage: THERAPY RECEIVED ON 13/FEB/2007
     Route: 042
     Dates: start: 200701
  5. AVASTIN [Suspect]
     Active Substance: BEVACIZUMAB
     Dosage: THERAPY RECEIVED ON 08/MAY/2007
     Route: 042
  6. ALOXI [Concomitant]
     Active Substance: PALONOSETRON HYDROCHLORIDE
     Route: 042
  7. AVASTIN [Suspect]
     Active Substance: BEVACIZUMAB
     Indication: BONE CANCER
     Dosage: THERAPY RECEIVED ON 13/MAR/2007
     Route: 042
  8. AVASTIN [Suspect]
     Active Substance: BEVACIZUMAB
     Dosage: THERAPY RECEIVED ON 10/APR/2007
     Route: 042
  9. ARANESP [Concomitant]
     Active Substance: DARBEPOETIN ALFA
     Route: 058
  10. DECADRON [Concomitant]
     Active Substance: DEXAMETHASONE
  11. DEMEROL [Concomitant]
     Active Substance: MEPERIDINE HYDROCHLORIDE
  12. ABRAXANE [Concomitant]
     Active Substance: PACLITAXEL
     Route: 042

REACTIONS (6)
  - Arthralgia [Unknown]
  - Off label use [Unknown]
  - Disease progression [Fatal]
  - Fluid retention [Unknown]
  - Fatigue [Unknown]
  - Dyspnoea [Unknown]
